FAERS Safety Report 8571310-1 (Version None)
Quarter: 2012Q3

REPORT INFORMATION
  Report Type: 
  Country: None (occurrence: None)
  Receive Date: 20120806
  Receipt Date: 20120725
  Transmission Date: 20120928
  Serious: Yes (Hospitalization, Other)
  Sender: FDA-Public Use
  Company Number: US-009507513-1201USA02270

PATIENT

DRUGS (3)
  1. FOSAMAX [Suspect]
     Dosage: 70 MG, ORAL
     Route: 048
     Dates: start: 20010401, end: 20080901
  2. FOSAMAX [Suspect]
     Indication: OSTEOPOROSIS
     Dosage: 10 MG, ORAL
     Route: 048
     Dates: start: 19980301, end: 20010301
  3. FOSAMAX [Suspect]
     Dosage: 70 MG, ORAL
     Route: 048
     Dates: start: 20081001, end: 20100401

REACTIONS (15)
  - INTERVERTEBRAL DISC PROTRUSION [None]
  - FEMUR FRACTURE [None]
  - BLOOD CHOLESTEROL INCREASED [None]
  - ARTHRITIS [None]
  - PYREXIA [None]
  - HIGH TURNOVER OSTEOPATHY [None]
  - FRACTURE NONUNION [None]
  - DEPRESSION [None]
  - HERPES ZOSTER [None]
  - GASTROOESOPHAGEAL REFLUX DISEASE [None]
  - LOWER GASTROINTESTINAL HAEMORRHAGE [None]
  - VITAMIN D DEFICIENCY [None]
  - CALCIUM DEFICIENCY [None]
  - VAGINAL DYSPLASIA [None]
  - ADVERSE EVENT [None]
